FAERS Safety Report 22821530 (Version 3)
Quarter: 2025Q4

REPORT INFORMATION
  Report Type: Spontaneous
  Country: GB (occurrence: GB)
  Receive Date: 20230814
  Receipt Date: 20251204
  Transmission Date: 20260118
  Serious: Yes (Hospitalization, Other)
  Sender: TORRENT PHARMA INC.
  Company Number: None

PATIENT
  Age: 38 Year
  Sex: Male

DRUGS (21)
  1. RISPERIDONE [Suspect]
     Active Substance: RISPERIDONE
     Indication: Product used for unknown indication
     Dosage: UNK
     Route: 065
     Dates: start: 201302
  2. VALPROATE SODIUM [Suspect]
     Active Substance: VALPROATE SODIUM
     Indication: Product used for unknown indication
     Dosage: 500 MILLIGRAM, BID
     Route: 065
     Dates: start: 201607
  3. AMISULPRIDE [Suspect]
     Active Substance: AMISULPRIDE
     Indication: Affective disorder
     Dosage: 200 MILLIGRAM, QD (200MG DAILY
     Route: 065
     Dates: start: 200301
  4. CARIPRAZINE [Suspect]
     Active Substance: CARIPRAZINE
     Indication: Product used for unknown indication
     Dosage: 3 MILLIGRAM, QD (3MG DAILY)
     Route: 048
     Dates: start: 202208, end: 2022
  5. CITALOPRAM [Suspect]
     Active Substance: CITALOPRAM
     Indication: Depressed mood
     Dosage: 20 MILLIGRAM, QD (20MG DAILY)
     Route: 065
     Dates: start: 200301, end: 2003
  6. CLOZARIL [Suspect]
     Active Substance: CLOZAPINE
     Indication: Schizophrenia
     Dosage: 200 MILLIGRAM, QD
     Route: 065
     Dates: start: 201012, end: 201201
  7. FERROUS SULFATE [Suspect]
     Active Substance: FERROUS SULFATE
     Indication: Product used for unknown indication
     Dosage: UNK
     Route: 065
  8. FLUPENTIXOL [Suspect]
     Active Substance: FLUPENTIXOL
     Indication: Product used for unknown indication
     Dosage: 200 MILLIGRAM, QW
     Route: 065
     Dates: start: 202212, end: 202303
  9. HALOPERIDOL [Suspect]
     Active Substance: HALOPERIDOL
     Indication: Product used for unknown indication
     Dosage: UNKNOWN
     Route: 065
  10. LORAZEPAM [Suspect]
     Active Substance: LORAZEPAM
     Indication: Product used for unknown indication
     Dosage: 1 MILLIGRAM, BID ( (PO/IM) 1-2MG (MAX 4MG IN 24 HOURS)
     Route: 065
     Dates: start: 201509
  11. CHOLECALCIFEROL [Concomitant]
     Active Substance: CHOLECALCIFEROL
     Indication: Product used for unknown indication
     Dosage: 800 INTERNATIONAL UNIT, QD (800 UNITS ONCE DAILY)
     Route: 065
  12. LACTULOSE [Concomitant]
     Active Substance: LACTULOSE
     Indication: Product used for unknown indication
     Dosage: 15 MILLILITER (MAX THREE TIMES DAILY)
     Route: 065
  13. ACETAMINOPHEN [Concomitant]
     Active Substance: ACETAMINOPHEN
     Indication: Product used for unknown indication
     Dosage: 1 GRAM (MAX 4G IN 24 HOURS)
     Route: 065
  14. PROCYCLIDINE [Concomitant]
     Active Substance: PROCYCLIDINE
     Indication: Product used for unknown indication
     Dosage: 2.5 MILLIGRAM (MAX 10MG IN 24 HOURS)
     Route: 065
  15. PROMETHAZINE [Concomitant]
     Active Substance: PROMETHAZINE HYDROCHLORIDE
     Indication: Product used for unknown indication
     Dosage: 25 MILLIGRAM (MAX 100MG IN 25 HOURS)
     Route: 065
  16. THIAMINE [Concomitant]
     Active Substance: THIAMINE
     Indication: Product used for unknown indication
     Dosage: 100 MILLIGRAM, BID (100MG TWICE DAILY)
     Route: 065
  17. VITAMIN B [Concomitant]
     Active Substance: VITAMIN B
     Indication: Product used for unknown indication
     Dosage: 1 DOSAGE FORM, BID (ONE TABLET TWICE DAILY)
     Route: 065
  18. FLEXITOL HEEL BALM [Concomitant]
     Indication: Product used for unknown indication
     Dosage: TWICE DAILY
     Route: 065
  19. FOLIC ACID\IRON\MINERALS\VITAMINS [Concomitant]
     Active Substance: FOLIC ACID\IRON\MINERALS\VITAMINS
     Indication: Product used for unknown indication
     Dosage: 1 DOSAGE FORM, QD (ONE TABLET ONCE DAILY)
     Route: 065
  20. ASCORBIC ACID\VITAMIN B COMPLEX [Concomitant]
     Active Substance: ASCORBIC ACID\VITAMIN B COMPLEX
     Indication: Product used for unknown indication
     Dosage: 1 DOSAGE FORM, BID (ONE TABLET TWICE DAILY)
     Route: 065
  21. HALDOL [Suspect]
     Active Substance: HALOPERIDOL
     Indication: Product used for unknown indication
     Dosage: UNKNOWN
     Route: 065

REACTIONS (33)
  - Suicidal ideation [Unknown]
  - Delusion [Not Recovered/Not Resolved]
  - Delusion of grandeur [Unknown]
  - Hallucination, auditory [Not Recovered/Not Resolved]
  - Neglect of personal appearance [Unknown]
  - Pneumonia aspiration [Unknown]
  - Aggression [Unknown]
  - COVID-19 [Unknown]
  - Dystonia [Unknown]
  - Mental impairment [Unknown]
  - Treatment noncompliance [Unknown]
  - Cardiac arrest [Unknown]
  - Accidental exposure to product [Unknown]
  - Thinking abnormal [Not Recovered/Not Resolved]
  - Weight decreased [Unknown]
  - Eating disorder [Unknown]
  - Insomnia [Unknown]
  - Withdrawal syndrome [Unknown]
  - Strabismus [Unknown]
  - Slow speech [Unknown]
  - Orthostatic hypotension [Unknown]
  - Acne [Unknown]
  - Vitamin D decreased [Unknown]
  - Red blood cell sedimentation rate decreased [Unknown]
  - Psoriasis [Unknown]
  - Depressed mood [Unknown]
  - Sedation [Unknown]
  - Neutrophil count decreased [Not Recovered/Not Resolved]
  - Lymphocyte count decreased [Unknown]
  - Blood prolactin increased [Unknown]
  - Drug ineffective [Unknown]
  - Off label use [Unknown]
  - Overdose [Unknown]

NARRATIVE: CASE EVENT DATE: 20021001
